FAERS Safety Report 6924272-4 (Version None)
Quarter: 2010Q3

REPORT INFORMATION
  Report Type: 
  Country: None (occurrence: None)
  Receive Date: 20100811
  Receipt Date: 20100811
  Transmission Date: 20110219
  Serious: Yes (Hospitalization)
  Sender: FDA-Public Use
  Company Number: None

PATIENT
  Age: 59 Year
  Sex: Female
  Weight: 60 kg

DRUGS (3)
  1. DOXIL [Suspect]
     Indication: BREAST CANCER
     Dosage: 30MG/M2 D1/28DAYS IV
     Route: 042
     Dates: start: 20100513, end: 20100805
  2. CARBOPLATIN [Suspect]
     Indication: BREAST CANCER
     Dosage: 5AUC D1/28DAYS IV
     Route: 042
     Dates: start: 20100513, end: 20100805
  3. BEVACIZUMAB [Suspect]
     Indication: BREAST CANCER
     Dosage: 10MG/KG D1 AND D15 ON 28 DAY CYCLE IV
     Route: 042
     Dates: start: 20100513, end: 20100805

REACTIONS (1)
  - PANCREATITIS ACUTE [None]
